FAERS Safety Report 9377172 (Version 1)
Quarter: 2013Q3

REPORT INFORMATION
  Report Type: Spontaneous
  Country: BE (occurrence: BE)
  Receive Date: 20130701
  Receipt Date: 20130701
  Transmission Date: 20140515
  Serious: Yes (Other)
  Sender: FDA-Public Use
  Company Number: BE-ROCHE-1239966

PATIENT
  Age: 76 Year
  Sex: Female
  Weight: 64 kg

DRUGS (9)
  1. XELODA [Suspect]
     Indication: BREAST CANCER METASTATIC
     Route: 048
     Dates: start: 200812, end: 200901
  2. XELODA [Suspect]
     Route: 048
     Dates: start: 201201, end: 201207
  3. HERCEPTIN [Suspect]
     Indication: BREAST CANCER METASTATIC
     Route: 065
     Dates: start: 201011, end: 201201
  4. HERCEPTIN [Suspect]
     Route: 065
     Dates: start: 201204, end: 201306
  5. LAPATINIB [Suspect]
     Indication: BREAST CANCER METASTATIC
     Route: 065
     Dates: start: 201201, end: 201204
  6. TAXOL [Concomitant]
     Route: 065
     Dates: start: 200703, end: 200705
  7. TAXOTERE [Concomitant]
     Route: 065
     Dates: start: 201011, end: 201104
  8. CARBOPLATIN [Concomitant]
  9. GEMCITABINE [Concomitant]

REACTIONS (2)
  - Toxicity to various agents [Unknown]
  - Metastases to lung [Unknown]
